FAERS Safety Report 5385050-3 (Version None)
Quarter: 2007Q3

REPORT INFORMATION
  Report Type: 
  Country: None (occurrence: None)
  Receive Date: 20070710
  Receipt Date: 20070710
  Transmission Date: 20080115
  Serious: Yes (Hospitalization)
  Sender: FDA-Public Use
  Company Number: None

PATIENT
  Age: 60 Year
  Sex: Male
  Weight: 78.4723 kg

DRUGS (3)
  1. OXALIPLATIN [Suspect]
     Indication: OESOPHAGEAL CARCINOMA
     Dosage: 78 MG D1 - D8 IV
     Route: 042
  2. XELODA [Suspect]
     Indication: OESOPHAGEAL CARCINOMA
     Dosage: 1000MG BID X 10D PO
     Route: 048
  3. TAXOTERE [Concomitant]

REACTIONS (5)
  - ABDOMINAL PAIN [None]
  - BLOOD POTASSIUM DECREASED [None]
  - DEHYDRATION [None]
  - DIARRHOEA [None]
  - HYPOVOLAEMIA [None]
